FAERS Safety Report 21429871 (Version 1)
Quarter: 2022Q4

REPORT INFORMATION
  Report Type: Spontaneous
  Country: US (occurrence: US)
  Receive Date: 20221009
  Receipt Date: 20221009
  Transmission Date: 20230112
  Serious: Yes (Death, Other)
  Sender: FDA-Public Use
  Company Number: US-PURDUE-USA-2020-0230787

PATIENT
  Age: 41 Year
  Sex: Male

DRUGS (3)
  1. DILAUDID [Suspect]
     Active Substance: HYDROMORPHONE HYDROCHLORIDE
     Indication: Neck pain
     Dosage: 1-2 8MG DAILY
     Route: 048
  2. DILAUDID [Suspect]
     Active Substance: HYDROMORPHONE HYDROCHLORIDE
     Indication: Thoracic outlet syndrome
  3. OXYCODONE HYDROCHLORIDE [Suspect]
     Active Substance: OXYCODONE HYDROCHLORIDE
     Indication: Accident
     Dosage: 3 TABLET, DAILY (10MG)
     Route: 065

REACTIONS (4)
  - Toxicity to various agents [Fatal]
  - Drug dependence [Unknown]
  - Physical abuse [Unknown]
  - Psychological abuse [Unknown]

NARRATIVE: CASE EVENT DATE: 20100629
